FAERS Safety Report 11265703 (Version 1)
Quarter: 2015Q3

REPORT INFORMATION
  Report Type: Spontaneous
  Country: US (occurrence: US)
  Receive Date: 20150713
  Receipt Date: 20150713
  Transmission Date: 20151125
  Serious: No
  Sender: FDA-Public Use
  Company Number: US-TAKEDA-2012-07887

PATIENT
  Sex: Female
  Weight: 98.87 kg

DRUGS (1)
  1. VELCADE [Suspect]
     Active Substance: BORTEZOMIB
     Indication: PLASMA CELL MYELOMA
     Dosage: 2.7 MG, 1/WEEK
     Route: 040
     Dates: start: 20120410, end: 20121019

REACTIONS (1)
  - Full blood count decreased [Unknown]
